FAERS Safety Report 9257265 (Version 2)
Quarter: 2013Q2

REPORT INFORMATION
  Report Type: Report from Study
  Country: US (occurrence: US)
  Receive Date: 20130426
  Receipt Date: 20130510
  Transmission Date: 20140414
  Serious: Yes (Life-Threatening, Hospitalization, Disabling)
  Sender: FDA-Public Use
  Company Number: PHEH2013US009306

PATIENT
  Age: 55 Year
  Sex: Female
  Weight: 79.3 kg

DRUGS (13)
  1. GILENYA [Suspect]
     Indication: MULTIPLE SCLEROSIS
     Dosage: 0.5 MG, QD
     Route: 048
     Dates: start: 20120424
  2. CELEXA [Concomitant]
     Dosage: 40 MG, DAILY
     Route: 048
  3. MS CONTIN [Concomitant]
     Dosage: 30 MG, Q8H
  4. VITAMIN D [Concomitant]
     Dosage: 2 DF, BID
     Route: 048
  5. MULTIVIT [Concomitant]
  6. AMANTADINE HCL [Concomitant]
     Dosage: 100 MG, BID
  7. LISINOPRIL [Concomitant]
     Dosage: 20 MG, DAILY
  8. LORTAB [Concomitant]
     Dosage: 1 DF, PRN
  9. VALIUM [Concomitant]
     Indication: ANXIETY
     Dosage: 1 DF, PRN (AT BED TIME)
     Route: 048
  10. VALIUM [Concomitant]
     Indication: RESTLESSNESS
  11. AMBIEN [Concomitant]
     Dosage: 1 DF, PRN
     Route: 048
  12. LOTRISONE [Concomitant]
     Indication: PRURITUS
  13. TENORMIN [Concomitant]
     Dosage: 1 DF, DAILY
     Route: 048

REACTIONS (4)
  - Ischaemic stroke [Recovered/Resolved with Sequelae]
  - Asthenia [Recovering/Resolving]
  - Dysarthria [Recovering/Resolving]
  - Motor dysfunction [Unknown]
